FAERS Safety Report 26067953 (Version 1)
Quarter: 2025Q4

REPORT INFORMATION
  Report Type: Spontaneous
  Country: US (occurrence: US)
  Receive Date: 20251120
  Receipt Date: 20251120
  Transmission Date: 20260117
  Serious: Yes (Other)
  Sender: COOPERSURGICAL
  Company Number: US-COOPERSURGICAL, INC.-2025CPS005601

PATIENT
  Age: 30 Year
  Sex: Female
  Weight: 73.469 kg

DRUGS (1)
  1. PARAGARD T 380A [Suspect]
     Active Substance: COPPER
     Indication: Contraception
     Dosage: UNK
     Route: 015
     Dates: start: 20160412

REACTIONS (25)
  - Surgery [Recovered/Resolved]
  - Device breakage [Recovered/Resolved]
  - Foreign body in reproductive tract [Recovered/Resolved]
  - Complication of device removal [Recovered/Resolved]
  - Embedded device [Recovered/Resolved]
  - Foreign body in urogenital tract [Recovered/Resolved]
  - Dizziness [Recovered/Resolved]
  - Blood loss anaemia [Not Recovered/Not Resolved]
  - Iron deficiency anaemia [Not Recovered/Not Resolved]
  - Thalassaemia [Not Recovered/Not Resolved]
  - Emotional distress [Recovered/Resolved]
  - Anxiety disorder [Not Recovered/Not Resolved]
  - Sensation of foreign body [Recovered/Resolved]
  - Irritability [Recovered/Resolved]
  - Vulvovaginal inflammation [Unknown]
  - Pain [Recovered/Resolved]
  - Dysmenorrhoea [Unknown]
  - Intermenstrual bleeding [Unknown]
  - Menstruation irregular [Unknown]
  - Abnormal uterine bleeding [Unknown]
  - Heavy menstrual bleeding [Unknown]
  - Device dislocation [Recovered/Resolved]
  - Pelvic pain [Recovered/Resolved]
  - Amenorrhoea [Unknown]
  - Hypomenorrhoea [Unknown]

NARRATIVE: CASE EVENT DATE: 20160701
